FAERS Safety Report 6430289-9 (Version None)
Quarter: 2009Q4

REPORT INFORMATION
  Report Type: 
  Country: None (occurrence: None)
  Receive Date: 20091105
  Receipt Date: 20091105
  Transmission Date: 20100525
  Serious: Yes (Hospitalization, Other)
  Sender: FDA-Public Use
  Company Number: None

PATIENT
  Sex: Female
  Weight: 40.8237 kg

DRUGS (1)
  1. LAMICTAL [Suspect]
     Indication: CONVULSION
     Dosage: 200 MG BID LIFETIME; 100 MG GD

REACTIONS (3)
  - CONVULSION [None]
  - DRUG LEVEL DECREASED [None]
  - PRODUCT SUBSTITUTION ISSUE [None]
